FAERS Safety Report 7166860-9 (Version None)
Quarter: 2010Q4

REPORT INFORMATION
  Report Type: 
  Country: None (occurrence: None)
  Receive Date: 20101213
  Receipt Date: 20101213
  Transmission Date: 20110411
  Serious: No
  Sender: FDA-Public Use
  Company Number: None

PATIENT
  Age: 46 Year
  Sex: Female
  Weight: 52.1637 kg

DRUGS (3)
  1. OFLOXACIN [Suspect]
     Indication: PELVIC INFLAMMATORY DISEASE
     Dosage: 1 TABLET 2 TIMES DAY
     Dates: start: 20101019, end: 20101026
  2. METROZONOLE [Concomitant]
  3. OLOXACIN [Concomitant]

REACTIONS (9)
  - BONE DISORDER [None]
  - GAIT DISTURBANCE [None]
  - HYPOAESTHESIA [None]
  - HYPOTONIA [None]
  - JOINT LOCK [None]
  - JOINT SWELLING [None]
  - MUSCULAR WEAKNESS [None]
  - PARAESTHESIA [None]
  - TENDON PAIN [None]
